FAERS Safety Report 18102283 (Version 2)
Quarter: 2020Q3

REPORT INFORMATION
  Report Type: Spontaneous
  Country: AR (occurrence: AR)
  Receive Date: 20200803
  Receipt Date: 20200812
  Transmission Date: 20201103
  Serious: Yes (Other)
  Sender: FDA-Public Use
  Company Number: AR-AMGEN-ARGSP2020123823

PATIENT
  Age: 86 Year
  Sex: Female

DRUGS (2)
  1. IRON [Concomitant]
     Active Substance: IRON
     Dosage: UNK
  2. ENBREL [Suspect]
     Active Substance: ETANERCEPT
     Indication: RHEUMATOID ARTHRITIS
     Dosage: 50 MG, WEEKLY
     Route: 065
     Dates: start: 20120518

REACTIONS (7)
  - Hip fracture [Unknown]
  - Musculoskeletal discomfort [Unknown]
  - Gait disturbance [Unknown]
  - Temperature intolerance [Unknown]
  - Sensitivity to weather change [Unknown]
  - Pain in extremity [Unknown]
  - Fall [Unknown]

NARRATIVE: CASE EVENT DATE: 20200728
